FAERS Safety Report 6663369-3 (Version None)
Quarter: 2010Q2

REPORT INFORMATION
  Report Type: 
  Country: None (occurrence: None)
  Receive Date: 20100401
  Receipt Date: 20100329
  Transmission Date: 20101027
  Serious: Yes (Death, Hospitalization, Other)
  Sender: FDA-Public Use
  Company Number: IT-CELGENEUS-083-21880-10031169

PATIENT
  Sex: Female

DRUGS (10)
  1. REVLIMID [Suspect]
     Indication: MULTIPLE MYELOMA
     Route: 048
     Dates: start: 20100208, end: 20100216
  2. REVLIMID [Suspect]
     Route: 048
  3. MELPHALAN HYDROCHLORIDE [Suspect]
     Indication: MULTIPLE MYELOMA
     Route: 048
     Dates: start: 20100208, end: 20100211
  4. MELPHALAN HYDROCHLORIDE [Suspect]
     Route: 048
  5. PREDNISONE TAB [Suspect]
     Indication: MULTIPLE MYELOMA
     Route: 048
     Dates: start: 20100208, end: 20100211
  6. PREDNISONE TAB [Suspect]
     Route: 048
  7. TPN [Suspect]
     Indication: CHOLECYSTITIS
     Route: 065
  8. CIPROXIN [Concomitant]
     Indication: DRUG USE FOR UNKNOWN INDICATION
     Route: 048
     Dates: start: 20100216, end: 20100303
  9. ASPIRIN [Concomitant]
     Indication: DRUG USE FOR UNKNOWN INDICATION
     Route: 048
     Dates: start: 20100216, end: 20100303
  10. PANTORC [Concomitant]
     Indication: DRUG USE FOR UNKNOWN INDICATION
     Route: 048
     Dates: start: 20100216, end: 20100303

REACTIONS (4)
  - CHOLECYSTITIS [None]
  - DEATH [None]
  - MULTI-ORGAN FAILURE [None]
  - THROMBOCYTOPENIA [None]
